FAERS Safety Report 8579273-X (Version None)
Quarter: 2012Q3

REPORT INFORMATION
  Report Type: 
  Country: None (occurrence: None)
  Receive Date: 20120808
  Receipt Date: 19900116
  Transmission Date: 20120928
  Serious: Yes (Other)
  Sender: FDA-Public Use
  Company Number: US-ROCHE-1097084

PATIENT
  Age: 50 Year
  Sex: Female

DRUGS (2)
  1. STELAZINE [Concomitant]
  2. ACTIVASE [Suspect]
     Indication: ACUTE MYOCARDIAL INFARCTION

REACTIONS (6)
  - HYPOTENSION [None]
  - HEMIPARESIS [None]
  - HEART RATE IRREGULAR [None]
  - MALAISE [None]
  - APHASIA [None]
  - PALPITATIONS [None]
